FAERS Safety Report 6190686-6 (Version None)
Quarter: 2009Q2

REPORT INFORMATION
  Report Type: 
  Country: None (occurrence: None)
  Receive Date: 20090514
  Receipt Date: 20090511
  Transmission Date: 20091009
  Serious: Yes (Death, Other)
  Sender: FDA-Public Use
  Company Number: JP-BRISTOL-MYERS SQUIBB COMPANY-14622609

PATIENT
  Age: 57 Year
  Sex: Male
  Weight: 74 kg

DRUGS (14)
  1. PARAPLATIN [Suspect]
     Indication: NON-SMALL CELL LUNG CANCER
     Dosage: 1ST CYC:28OCT08 2ND CYC:18NOV08 3RD CYC:09DEC08 4TH CYC:07JAN09 (LAST) DISCONT ON 27JAN09
     Route: 042
     Dates: start: 20090107, end: 20090107
  2. TAXOL [Suspect]
     Indication: NON-SMALL CELL LUNG CANCER
     Dosage: 1ST CYC:28OCT08 2ND CYC:18NOV08 3RD CYC:09DEC08 4TH CYC:07JAN09 (LAST DOSE) DISCONT ON 27JAN09
     Route: 042
     Dates: start: 20090107, end: 20090107
  3. DIPHENHYDRAMINE HCL [Concomitant]
  4. KYTRIL [Concomitant]
  5. DEXAMETHASONE SODIUM PHOSPHATE [Concomitant]
  6. ZANTAC [Concomitant]
  7. OLMETEC [Concomitant]
     Indication: HYPERTENSION
  8. BLOPRESS [Concomitant]
     Indication: HYPERTENSION
  9. URINORM [Concomitant]
     Indication: HYPERURICAEMIA
  10. LIPITOR [Concomitant]
     Indication: HYPERLIPIDAEMIA
  11. AMOBAN [Concomitant]
     Indication: INSOMNIA
  12. MYSLEE [Concomitant]
     Indication: INSOMNIA
  13. LENDORMIN [Concomitant]
     Indication: INSOMNIA
  14. NOVAMIN [Concomitant]
     Indication: NAUSEA

REACTIONS (1)
  - ACUTE MYOCARDIAL INFARCTION [None]
